FAERS Safety Report 8274436-5 (Version None)
Quarter: 2012Q2

REPORT INFORMATION
  Report Type: 
  Country: None (occurrence: None)
  Receive Date: 20120411
  Receipt Date: 20120328
  Transmission Date: 20120825
  Serious: Yes (Death, Other)
  Sender: FDA-Public Use
  Company Number: HU-ROCHE-1052459

PATIENT
  Sex: Male

DRUGS (8)
  1. XELODA [Suspect]
     Indication: RECTAL CANCER METASTATIC
     Route: 042
     Dates: start: 20120118, end: 20120130
  2. SYNCUMAR [Concomitant]
  3. AVASTIN [Suspect]
     Indication: RECTAL CANCER METASTATIC
     Route: 042
     Dates: start: 20120118, end: 20120130
  4. ACENOCOUMAROL [Concomitant]
     Route: 048
     Dates: start: 19910101, end: 20120119
  5. VALSACOR [Concomitant]
     Indication: HYPERTENSION
  6. PENTOXYL-EP [Concomitant]
     Indication: PERIPHERAL VASCULAR DISORDER
  7. CONTROLOC (HUNGARY) [Concomitant]
     Indication: GASTROOESOPHAGEAL REFLUX DISEASE
  8. IRINOTECAN HCL [Suspect]
     Indication: RECTAL CANCER METASTATIC
     Route: 042
     Dates: start: 20120118, end: 20120130

REACTIONS (5)
  - CARDIAC FAILURE [None]
  - THROMBOSIS [None]
  - ANAEMIA [None]
  - NEUTROPENIA [None]
  - DIARRHOEA [None]
